FAERS Safety Report 18162685 (Version 2)
Quarter: 2020Q3

REPORT INFORMATION
  Report Type: Spontaneous
  Country: US (occurrence: US)
  Receive Date: 20200818
  Receipt Date: 20200819
  Transmission Date: 20201103
  Serious: No
  Sender: FDA-Public Use
  Company Number: US-PFIZER INC-2020317528

PATIENT
  Age: 59 Year
  Sex: Female
  Weight: 58.06 kg

DRUGS (4)
  1. DUAVEE [Suspect]
     Active Substance: BAZEDOXIFENE ACETATE\ESTROGENS, CONJUGATED
     Dosage: 1 DF, ALTERNATE DAY (0.45MG/20MG TABLET BY MOUTH, EVERY OTHER DAY)
     Route: 048
     Dates: start: 202008
  2. ZOLOFT [Concomitant]
     Active Substance: SERTRALINE HYDROCHLORIDE
     Dosage: ^LOW DOSE^ (TAKING IT FOR 30 YEARS)
  3. DUAVEE [Suspect]
     Active Substance: BAZEDOXIFENE ACETATE\ESTROGENS, CONJUGATED
     Dosage: UNK, DAILY
  4. DUAVEE [Suspect]
     Active Substance: BAZEDOXIFENE ACETATE\ESTROGENS, CONJUGATED
     Indication: HOT FLUSH
     Dosage: UNK (START: APPROXIMATELY 5 YEARS AGO.)

REACTIONS (6)
  - Product use issue [Unknown]
  - Neck pain [Not Recovered/Not Resolved]
  - Off label use [Unknown]
  - Oropharyngeal pain [Not Recovered/Not Resolved]
  - Feeling abnormal [Not Recovered/Not Resolved]
  - Anxiety [Not Recovered/Not Resolved]

NARRATIVE: CASE EVENT DATE: 202005
